FAERS Safety Report 12518916 (Version 1)
Quarter: 2016Q2

REPORT INFORMATION
  Report Type: Other
  Country: DE (occurrence: DE)
  Receive Date: 20160630
  Receipt Date: 20160630
  Transmission Date: 20160815
  Serious: Yes (Hospitalization, Disabling)
  Sender: FDA-Public Use
  Company Number: DE-LUPIN PHARMACEUTICALS INC.-E2B_00004602

PATIENT
  Age: 46 Year
  Sex: Male
  Weight: 75 kg

DRUGS (5)
  1. SIMVASTATIN. [Suspect]
     Active Substance: SIMVASTATIN
     Indication: TYPE IIA HYPERLIPIDAEMIA
     Route: 048
     Dates: start: 1995
  2. SIMVASTATIN. [Suspect]
     Active Substance: SIMVASTATIN
     Route: 065
  3. DEKRISTOL 20000 I.E. [Concomitant]
     Indication: VITAMIN D DEFICIENCY
     Route: 048
     Dates: start: 2012
  4. FERMED [Concomitant]
     Indication: IRON DEFICIENCY ANAEMIA
     Route: 042
     Dates: start: 201505, end: 201507
  5. ASPIRIN. [Concomitant]
     Active Substance: ASPIRIN
     Indication: CORONARY ARTERY DISEASE
     Route: 048
     Dates: start: 1995

REACTIONS (1)
  - Non-alcoholic steatohepatitis [Recovering/Resolving]

NARRATIVE: CASE EVENT DATE: 2013
